FAERS Safety Report 14191677 (Version 1)
Quarter: 2017Q4

REPORT INFORMATION
  Report Type: Spontaneous
  Country: FR (occurrence: FR)
  Receive Date: 20171115
  Receipt Date: 20171115
  Transmission Date: 20180321
  Serious: Yes (Hospitalization)
  Sender: FDA-Public Use
  Company Number: FR-ASTRAZENECA-2017SF15819

PATIENT
  Age: 19663 Day
  Sex: Female

DRUGS (8)
  1. DESLORATADINE. [Concomitant]
     Active Substance: DESLORATADINE
  2. CELEBREX [Suspect]
     Active Substance: CELECOXIB
     Indication: ARTHRALGIA
     Route: 048
     Dates: start: 20171011, end: 20171022
  3. TELMISARTAN. [Concomitant]
     Active Substance: TELMISARTAN
  4. INEXIUM [Suspect]
     Active Substance: ESOMEPRAZOLE
     Route: 048
     Dates: end: 20171022
  5. MONTELUKAST [Concomitant]
     Active Substance: MONTELUKAST SODIUM
  6. CROMOGLICATE SODIUM [Concomitant]
     Active Substance: CROMOLYN SODIUM
  7. DOLIPRANE [Concomitant]
     Active Substance: ACETAMINOPHEN
  8. MICARDIS [Concomitant]
     Active Substance: TELMISARTAN

REACTIONS (2)
  - Toxic skin eruption [Recovering/Resolving]
  - Type IV hypersensitivity reaction [Recovering/Resolving]

NARRATIVE: CASE EVENT DATE: 20171022
